FAERS Safety Report 7302989-X (Version None)
Quarter: 2011Q1

REPORT INFORMATION
  Report Type: 
  Country: None (occurrence: None)
  Receive Date: 20110220
  Receipt Date: 20110207
  Transmission Date: 20110831
  Serious: Yes (Life-Threatening)
  Sender: FDA-Public Use
  Company Number: GB-MYLANLABS-2010S1013156

PATIENT
  Age: 61 Year
  Sex: Female
  Weight: 69.85 kg

DRUGS (2)
  1. CHAMPIX [Suspect]
     Indication: PRODUCT USED FOR UNKNOWN INDICATION
     Route: 048
     Dates: start: 20100415, end: 20100710
  2. FLUOXETINE [Suspect]
     Indication: DEPRESSION

REACTIONS (3)
  - DRUG INTERACTION [None]
  - DYSPEPSIA [None]
  - DEPRESSION SUICIDAL [None]
